FAERS Safety Report 7333509-1 (Version None)
Quarter: 2011Q1

REPORT INFORMATION
  Report Type: 
  Country: None (occurrence: None)
  Receive Date: 20110304
  Receipt Date: 20110221
  Transmission Date: 20110831
  Serious: Yes (Hospitalization, Other)
  Sender: FDA-Public Use
  Company Number: JP-GENENTECH-314472

PATIENT
  Sex: Female
  Weight: 38 kg

DRUGS (13)
  1. FAMOTIDINE [Concomitant]
     Indication: PRODUCT USED FOR UNKNOWN INDICATION
     Dosage: UNK
     Dates: start: 20100510
  2. PREDONINE [Concomitant]
     Indication: PRODUCT USED FOR UNKNOWN INDICATION
     Dosage: UNK
     Dates: start: 20091221
  3. XOLAIR [Suspect]
     Indication: ASTHMA
     Dosage: 300 MG, Q4W
     Route: 058
     Dates: start: 20091221
  4. BONALON [Concomitant]
     Indication: PRODUCT USED FOR UNKNOWN INDICATION
     Dosage: 35 MG, UNK
     Dates: start: 20100510
  5. MEDICON [Concomitant]
     Indication: PRODUCT USED FOR UNKNOWN INDICATION
     Dosage: UNK
     Dates: start: 20091221
  6. HOKUNALIN [Concomitant]
     Indication: PRODUCT USED FOR UNKNOWN INDICATION
  7. SOLDEM [Concomitant]
     Indication: PRODUCT USED FOR UNKNOWN INDICATION
  8. ALFAROL [Concomitant]
     Indication: PRODUCT USED FOR UNKNOWN INDICATION
     Dosage: UNK
     Dates: start: 20091221, end: 20100412
  9. GASTER D [Concomitant]
     Indication: PRODUCT USED FOR UNKNOWN INDICATION
     Dosage: UNK
     Dates: start: 20091221, end: 20100412
  10. ACTONEL [Concomitant]
     Indication: PRODUCT USED FOR UNKNOWN INDICATION
     Dosage: UNK
     Dates: start: 20091221, end: 20100412
  11. PROCATEROL HCL [Concomitant]
     Indication: PRODUCT USED FOR UNKNOWN INDICATION
  12. QVAR 40 [Concomitant]
     Indication: PRODUCT USED FOR UNKNOWN INDICATION
     Dosage: UNK
     Dates: start: 20091221
  13. MUCOSIL-10 [Concomitant]
     Indication: PRODUCT USED FOR UNKNOWN INDICATION
     Dosage: UNK
     Dates: start: 20091221

REACTIONS (2)
  - PNEUMOTHORAX [None]
  - ASTHMA [None]
